FAERS Safety Report 4477592-X (Version None)
Quarter: 2004Q4

REPORT INFORMATION
  Report Type: 
  Country: None (occurrence: None)
  Receive Date: 20041012
  Receipt Date: 20040929
  Transmission Date: 20050328
  Serious: Yes (Death, Life-Threatening, Hospitalization)
  Sender: FDA-Public Use
  Company Number: DE_040713949

PATIENT
  Age: 43 Year
  Sex: Female

DRUGS (6)
  1. ZYPREXA [Suspect]
     Indication: ACUTE PSYCHOSIS
     Dosage: 10 MG/1 DAY
     Route: 030
     Dates: start: 20040709
  2. ZYPREXA [Suspect]
     Indication: AGITATION
     Dosage: 10 MG/1 DAY
     Route: 030
     Dates: start: 20040709
  3. ZYPREXA [Suspect]
     Indication: SCHIZOPHRENIA
     Dosage: 10 MG/1 DAY
     Route: 030
     Dates: start: 20040709
  4. HALDOL          -JANSSEN DECANOAT    (HALOPERIDOL DECANOATE) [Concomitant]
  5. HALDOL [Concomitant]
  6. LORAZEPAM [Concomitant]
     Dosage: 2.5MG/DAY

REACTIONS (6)
  - CARDIAC ARREST [None]
  - HYPOTENSION [None]
  - PULSE ABNORMAL [None]
  - SUICIDE ATTEMPT [None]
  - SYNCOPE [None]
  - VENTRICULAR FIBRILLATION [None]
